FAERS Safety Report 10255356 (Version 1)
Quarter: 2014Q2

REPORT INFORMATION
  Report Type: Spontaneous
  Country: US (occurrence: US)
  Receive Date: 20140624
  Receipt Date: 20140624
  Transmission Date: 20141212
  Serious: No
  Sender: FDA-Public Use
  Company Number: US-PFIZER INC-2014171878

PATIENT
  Age: 44 Year
  Sex: Female
  Weight: 127.89 kg

DRUGS (11)
  1. CELEBREX [Suspect]
     Indication: OSTEOARTHRITIS
     Dosage: 200 MG, 3X/DAY
  2. LYRICA [Suspect]
     Indication: NEUROPATHY PERIPHERAL
     Dosage: UNK
     Dates: start: 2000, end: 2000
  3. LYRICA [Suspect]
     Indication: FIBROMYALGIA
  4. CLONIDINE [Concomitant]
     Indication: HYPERTENSION
     Dosage: 0.1 MG, DAILY
  5. MONTELUKAST SODIUM [Concomitant]
     Indication: ASTHMA
     Dosage: 10 MG, DAILY
  6. DESOXIMETASONE [Concomitant]
     Indication: ECZEMA
     Dosage: UNK
  7. NASONEX [Concomitant]
     Indication: SINUS CONGESTION
     Dosage: UNK
  8. DULERA [Concomitant]
     Indication: ASTHMA
     Dosage: UNK
  9. ADVAIR DISKUS [Concomitant]
     Indication: ASTHMA
     Dosage: UNK
  10. LEVOTHYROXINE [Concomitant]
     Indication: THYROID DISORDER
     Dosage: 25 UG, UNK
  11. RABEPRAZOLE [Concomitant]
     Indication: GASTROOESOPHAGEAL REFLUX DISEASE
     Dosage: 20 MG, UNK

REACTIONS (2)
  - Swelling [Unknown]
  - Drug ineffective [Unknown]
